FAERS Safety Report 8460004 (Version 6)
Quarter: 2012Q4

REPORT INFORMATION
  Report Type: 
  Country: JP (occurrence: JP)
  Receive Date: 20120314
  Receipt Date: 20121228
  Transmission Date: 20130627
  Serious: Yes (Hospitalization)
  Sender: FDA-Public Use
  Company Number: JP-VERTEX PHARMACEUTICALS INC.-AE-2012-003588

PATIENT
  Age: 50 Year
  Sex: Male

DRUGS (10)
  1. TELAVIC [Suspect]
     Indication: CHRONIC HEPATITIS C
     Dosage: 2250 mg, qd
     Route: 048
     Dates: start: 20120119, end: 20120305
  2. PEGINTERFERON ALFA-2B [Suspect]
     Indication: CHRONIC HEPATITIS C
     Dosage: 1.5 ?g/kg, qw
     Route: 058
     Dates: start: 20120119, end: 20120308
  3. PEGINTERFERON ALFA-2B [Suspect]
     Dosage: 1.5 ?g/kg, qw
     Route: 058
     Dates: start: 20120322, end: 20120628
  4. RIBAVIRIN [Suspect]
     Indication: CHRONIC HEPATITIS C
     Dosage: 800 mg, qd
     Route: 048
     Dates: start: 20120119, end: 20120215
  5. RIBAVIRIN [Suspect]
     Dosage: 600 mg, qd
     Route: 048
     Dates: start: 20120216, end: 20120305
  6. RIBAVIRIN [Suspect]
     Dosage: 400 mg, qd
     Route: 048
     Dates: start: 20120308, end: 20120404
  7. RIBAVIRIN [Suspect]
     Dosage: 600 mg, qd
     Route: 048
     Dates: start: 20120405, end: 20120523
  8. XYZAL [Concomitant]
     Dosage: 5 mg, qd
     Route: 048
     Dates: start: 20120130, end: 20120229
  9. ALLEGRA [Concomitant]
     Dosage: 120 mg, qd
     Route: 048
     Dates: start: 20120301, end: 20120315
  10. NEXIUM                             /01479302/ [Concomitant]
     Dosage: 20 mg, qd
     Route: 048
     Dates: start: 20120310

REACTIONS (4)
  - Drug eruption [Recovered/Resolved]
  - Haemoglobin decreased [Recovered/Resolved]
  - Hyperuricaemia [Recovered/Resolved]
  - Drug eruption [Recovered/Resolved]
